FAERS Safety Report 8952548 (Version 1)
Quarter: 2012Q4

REPORT INFORMATION
  Report Type: 
  Country: US (occurrence: US)
  Receive Date: 20121205
  Receipt Date: 20121205
  Transmission Date: 20130627
  Serious: No
  Sender: FDA-Public Use
  Company Number: US-PFIZER INC-2012305195

PATIENT
  Age: 68 Year
  Sex: Female
  Weight: 95.24 kg

DRUGS (4)
  1. LYRICA [Suspect]
     Indication: FIBROMYALGIA
     Dosage: 50 mg, 2x/day
     Route: 048
     Dates: start: 20121006
  2. LYRICA [Suspect]
     Dosage: 50 mg, 1x/day
     Route: 048
     Dates: start: 2012
  3. EFFEXOR-XR [Concomitant]
     Indication: DEPRESSION
     Dosage: 150 mg, 1x/day
  4. METOPROLOL [Concomitant]
     Indication: BLOOD PRESSURE HIGH
     Dosage: UNK

REACTIONS (5)
  - Somnolence [Unknown]
  - Pruritus [Not Recovered/Not Resolved]
  - Limb discomfort [Not Recovered/Not Resolved]
  - Weight increased [Unknown]
  - Restless legs syndrome [Not Recovered/Not Resolved]
